FAERS Safety Report 25550731 (Version 1)
Quarter: 2025Q3

REPORT INFORMATION
  Report Type: Spontaneous
  Country: EU (occurrence: EU)
  Receive Date: 20250714
  Receipt Date: 20250714
  Transmission Date: 20251021
  Serious: Yes (Other)
  Sender: SANDOZ
  Company Number: EU-JNJFOC-20230535068

PATIENT
  Age: 43 Year
  Sex: Male

DRUGS (3)
  1. METHOTREXATE [Suspect]
     Active Substance: METHOTREXATE
     Indication: Product used for unknown indication
     Route: 065
  2. SIMPONI [Suspect]
     Active Substance: GOLIMUMAB
     Indication: Rheumatoid arthritis
     Route: 058
  3. Flubason facial [Concomitant]
     Indication: Product used for unknown indication
     Route: 065

REACTIONS (5)
  - Pulmonary mass [Unknown]
  - Acute febrile neutrophilic dermatosis [Unknown]
  - COVID-19 [Unknown]
  - Eating disorder [Unknown]
  - Weight decreased [Unknown]
